FAERS Safety Report 6393561-7 (Version None)
Quarter: 2009Q4

REPORT INFORMATION
  Report Type: 
  Country: None (occurrence: None)
  Receive Date: 20091008
  Receipt Date: 20091002
  Transmission Date: 20100525
  Serious: Yes (Hospitalization, Other)
  Sender: FDA-Public Use
  Company Number: D0063106A

PATIENT
  Sex: Male

DRUGS (3)
  1. REQUIP [Suspect]
     Dosage: 8MG UNKNOWN
     Route: 048
  2. NACOM [Concomitant]
     Route: 065
  3. NOVAMINSULFON [Concomitant]
     Route: 065

REACTIONS (1)
  - RHABDOMYOLYSIS [None]
